FAERS Safety Report 8770590 (Version 1)
Quarter: 2012Q4

REPORT INFORMATION
  Report Type: 
  Country: FR (occurrence: FR)
  Receive Date: 20120906
  Receipt Date: 20120906
  Transmission Date: 20130627
  Serious: Yes (Hospitalization)
  Sender: FDA-Public Use
  Company Number: FR-GILEAD-2012-0060596

PATIENT
  Sex: Male

DRUGS (7)
  1. VIREAD [Suspect]
     Indication: HIV INFECTION
     Dosage: UNK
     Route: 048
     Dates: start: 201201, end: 201201
  2. NORVIR [Suspect]
     Indication: HIV INFECTION
     Dosage: UNK
     Route: 048
     Dates: start: 201201, end: 201201
  3. PREZISTA [Suspect]
     Indication: HIV INFECTION
     Dosage: UNK
     Route: 048
     Dates: start: 201201, end: 201201
  4. ZIAGEN [Suspect]
     Indication: HIV INFECTION
     Dosage: UNK
     Route: 048
     Dates: start: 201201, end: 201201
  5. METFORMINE [Concomitant]
     Route: 048
  6. RENITEC                            /00574902/ [Concomitant]
     Route: 048
  7. VENTOLINE                          /00139501/ [Concomitant]
     Route: 055

REACTIONS (3)
  - Generalised oedema [Recovered/Resolved with Sequelae]
  - Skin test negative [Unknown]
  - Vomiting [Recovered/Resolved with Sequelae]
